FAERS Safety Report 16695771 (Version 1)
Quarter: 2019Q3

REPORT INFORMATION
  Report Type: Spontaneous
  Country: US (occurrence: US)
  Receive Date: 20190813
  Receipt Date: 20190813
  Transmission Date: 20191004
  Serious: No
  Sender: FDA-Public Use
  Company Number: US-TEVA-2019-US-1090694

PATIENT
  Age: 77 Year
  Sex: Female

DRUGS (1)
  1. ACTAVIS LORAZEPAM [Suspect]
     Active Substance: LORAZEPAM
     Route: 065

REACTIONS (2)
  - Skin discolouration [Unknown]
  - Blister [Unknown]
